FAERS Safety Report 23282695 (Version 2)
Quarter: 2023Q4

REPORT INFORMATION
  Report Type: Spontaneous
  Country: GB (occurrence: GB)
  Receive Date: 20231211
  Receipt Date: 20231222
  Transmission Date: 20240110
  Serious: No
  Sender: FDA-Public Use
  Company Number: GB-SA-2023SA382771

PATIENT

DRUGS (1)
  1. ENOXAPARIN SODIUM [Suspect]
     Active Substance: ENOXAPARIN SODIUM
     Dosage: UNK

REACTIONS (2)
  - Device malfunction [Unknown]
  - No adverse event [Unknown]
